FAERS Safety Report 20153043 (Version 9)
Quarter: 2025Q1

REPORT INFORMATION
  Report Type: Report from Study
  Country: FR (occurrence: FR)
  Receive Date: 20211206
  Receipt Date: 20250207
  Transmission Date: 20250409
  Serious: Yes (Hospitalization)
  Sender: TAKEDA
  Company Number: FR-TAKEDA-2021TUS075940

PATIENT
  Age: 19 Year
  Sex: Female

DRUGS (6)
  1. TEDUGLUTIDE [Suspect]
     Active Substance: TEDUGLUTIDE
     Indication: Short-bowel syndrome
     Dosage: 2.6 MILLIGRAM, QD
     Dates: start: 20190821, end: 20201012
  2. TEDUGLUTIDE [Suspect]
     Active Substance: TEDUGLUTIDE
     Dosage: 2.8 MILLIGRAM, QD
     Dates: start: 20201013
  3. TEDUGLUTIDE [Suspect]
     Active Substance: TEDUGLUTIDE
  4. TEDUGLUTIDE [Suspect]
     Active Substance: TEDUGLUTIDE
  5. Fenticonazole bailleul [Concomitant]
     Indication: Fungal infection
     Dosage: UNK UNK, BID
     Dates: start: 202104, end: 202105
  6. VITAMIN K [Concomitant]
     Active Substance: PHYTONADIONE
     Indication: Vitamin K deficiency
     Dosage: 10 MILLIGRAM, SINGLE
     Dates: start: 20210411, end: 20210411

REACTIONS (6)
  - Intentional device misuse [Recovered/Resolved]
  - Vitamin D deficiency [Recovered/Resolved]
  - Hypovitaminosis [Recovered/Resolved]
  - Zinc deficiency [Recovered/Resolved]
  - Vitamin A deficiency [Recovered/Resolved]
  - Copper deficiency [Recovered/Resolved]

NARRATIVE: CASE EVENT DATE: 20210411
